FAERS Safety Report 15786028 (Version 1)
Quarter: 2018Q4

REPORT INFORMATION
  Report Type: Spontaneous
  Country: US (occurrence: US)
  Receive Date: 20181228
  Receipt Date: 20181228
  Transmission Date: 20190205
  Serious: No
  Sender: FDA-Public Use
  Company Number: None

PATIENT
  Sex: Female

DRUGS (1)
  1. METHOTREXATE TABLETS METHOTREXATE [Suspect]
     Active Substance: METHOTREXATE
     Route: 048

REACTIONS (7)
  - Inappropriate schedule of product administration [None]
  - Renal failure [None]
  - Mental status changes [None]
  - Product prescribing error [None]
  - Prescribed overdose [None]
  - Neutropenia [None]
  - Mucosal inflammation [None]
